FAERS Safety Report 4541280-1 (Version None)
Quarter: 2004Q4

REPORT INFORMATION
  Report Type: 
  Country: None (occurrence: None)
  Receive Date: 20041228
  Receipt Date: 20041213
  Transmission Date: 20050328
  Serious: Yes (Hospitalization)
  Sender: FDA-Public Use
  Company Number: T04-USA-08273-01

PATIENT
  Age: 63 Year
  Sex: Female
  Weight: 44.9061 kg

DRUGS (7)
  1. MEMANTINE HCL [Suspect]
     Indication: DEMENTIA ALZHEIMER'S TYPE
     Dosage: 204 MG QD PO
     Route: 048
     Dates: start: 20040614
  2. MEMANTINE HCL [Suspect]
     Indication: DEMENTIA ALZHEIMER'S TYPE
     Dosage: 4 TABLET QD PO
     Route: 048
  3. ASPIRIN [Concomitant]
  4. ALENDRONATE (ALENDRONATE SODIUM) [Concomitant]
  5. PAROXETINE HCL [Concomitant]
  6. TOCOPHEROL CONCENTRATE CAP [Concomitant]
  7. GINGKO (GINGKO BILOBA) [Concomitant]

REACTIONS (1)
  - ULCER HAEMORRHAGE [None]
